FAERS Safety Report 5622456-9 (Version None)
Quarter: 2008Q1

REPORT INFORMATION
  Report Type: 
  Country: None (occurrence: None)
  Receive Date: 20080114
  Receipt Date: 20070911
  Transmission Date: 20080703
  Serious: Yes (Other)
  Sender: FDA-Public Use
  Company Number: A03200705508

PATIENT
  Age: 76 Year
  Sex: Female

DRUGS (1)
  1. PLAVIX [Suspect]
     Indication: STENT PLACEMENT
     Dosage: NI - ORAL
     Route: 048
     Dates: start: 20070801, end: 20070801

REACTIONS (4)
  - ANAEMIA [None]
  - BLOOD PRESSURE SYSTOLIC DECREASED [None]
  - HYPERSENSITIVITY [None]
  - RASH [None]
